FAERS Safety Report 4348394-X (Version None)
Quarter: 2004Q1

REPORT INFORMATION
  Report Type: 
  Country: None (occurrence: None)
  Receive Date: 20040325
  Receipt Date: 20031229
  Transmission Date: 20041129
  Serious: No
  Sender: FDA-Public Use
  Company Number: USA031050524

PATIENT
  Age: 73 Year
  Sex: Female
  Weight: 52 kg

DRUGS (1)
  1. FORTEO [Suspect]
     Indication: BONE DENSITY DECREASED
     Dates: start: 20031001

REACTIONS (7)
  - ERYTHEMA [None]
  - HYPOTENSION [None]
  - INJECTION SITE HAEMORRHAGE [None]
  - INJECTION SITE PRURITUS [None]
  - OEDEMA PERIPHERAL [None]
  - ORAL PRURITUS [None]
  - PRURITUS [None]
